FAERS Safety Report 12103926 (Version 2)
Quarter: 2016Q3

REPORT INFORMATION
  Report Type: Spontaneous
  Country: BE (occurrence: BE)
  Receive Date: 20160223
  Receipt Date: 20160804
  Transmission Date: 20161109
  Serious: Yes (Hospitalization, Disabling)
  Sender: FDA-Public Use
  Company Number: BE-ASTRAZENECA-2016SE18288

PATIENT
  Age: 81 Year
  Sex: Male
  Weight: 60 kg

DRUGS (18)
  1. PANTOMED [Concomitant]
     Active Substance: DEXPANTHENOL
  2. DUOVENT [Concomitant]
     Active Substance: FENOTEROL HYDROBROMIDE
  3. AUGMENTIN [Concomitant]
     Active Substance: AMOXICILLIN\CLAVULANATE POTASSIUM
     Dates: end: 20160301
  4. FLAGYL [Concomitant]
     Active Substance: METRONIDAZOLE\METRONIDAZOLE HYDROCHLORIDE
  5. FEROGRADUMET [Concomitant]
  6. SERETIDE [Concomitant]
     Active Substance: FLUTICASONE PROPIONATE\SALMETEROL XINAFOATE
     Dosage: 25/250 MG 2 PUFFS 2 TIMES A DAY
  7. IRESSA [Suspect]
     Active Substance: GEFITINIB
     Indication: LUNG NEOPLASM MALIGNANT
     Route: 048
     Dates: start: 20141225, end: 20160209
  8. COVERSYL PLUS [Concomitant]
     Active Substance: INDAPAMIDE\PERINDOPRIL
     Dosage: 5/1.25 MG 1 TABLET /DAY
  9. FOLAVIT [Concomitant]
  10. RIVOTRIL [Concomitant]
     Active Substance: CLONAZEPAM
  11. ZALDIAR [Concomitant]
     Active Substance: ACETAMINOPHEN\TRAMADOL HYDROCHLORIDE
     Indication: PAIN
     Dosage: AS REQUIRED IN CASE OF PAIN
  12. DUROGESIC [Concomitant]
     Active Substance: FENTANYL
  13. VITAMIN B12 [Concomitant]
     Active Substance: CYANOCOBALAMIN
     Dosage: 1000 GAMMA B12, ONCE A WEEK
     Route: 030
  14. MITOSYL [Concomitant]
     Dosage: 2 TIMES A DAY, LOCAL APPLICATION
  15. ASAFLOW [Concomitant]
     Active Substance: ASPIRIN
  16. PRAREDUCT [Concomitant]
  17. CINNARIZINE EG [Concomitant]
  18. DAFALGAN [Concomitant]
     Active Substance: ACETAMINOPHEN
     Dosage: AS REQUIRED BUT MAX 4 TIMES A DAY

REACTIONS (24)
  - Metastases to meninges [Unknown]
  - Malignant pleural effusion [Unknown]
  - Pyogenic granuloma [Unknown]
  - Decreased appetite [Unknown]
  - Dysphagia [Recovering/Resolving]
  - Pneumonia [Unknown]
  - Anaemia [Unknown]
  - Muscular weakness [Unknown]
  - Fall [Unknown]
  - General physical health deterioration [Unknown]
  - Mobility decreased [Unknown]
  - Abnormal behaviour [Unknown]
  - Encephalopathy [Unknown]
  - Cholelithiasis [Unknown]
  - Cholecystitis acute [Unknown]
  - Chronic obstructive pulmonary disease [Unknown]
  - Fatigue [Unknown]
  - Pyrexia [Unknown]
  - Abasia [Recovering/Resolving]
  - Asthenia [Recovering/Resolving]
  - Cystitis pseudomonal [Unknown]
  - Lung adenocarcinoma stage IV [Unknown]
  - Diarrhoea [Unknown]
  - Somnolence [Unknown]

NARRATIVE: CASE EVENT DATE: 2015
